FAERS Safety Report 9863034 (Version 2)
Quarter: 2014Q2

REPORT INFORMATION
  Report Type: Spontaneous
  Country: US (occurrence: US)
  Receive Date: 20140203
  Receipt Date: 20140416
  Transmission Date: 20141212
  Serious: No
  Sender: FDA-Public Use
  Company Number: US-B.I. PHARMACEUTICALS,INC./RIDGEFIELD-2014-BI-04226BP

PATIENT
  Sex: Male

DRUGS (6)
  1. JENTADUETO [Suspect]
     Indication: TYPE 2 DIABETES MELLITUS
     Dosage: DOSE PER APPLICATION: 2.5 MG / 500 MG; DAILY DOSE: 2.5 MG/500 MG
     Route: 048
     Dates: start: 201208
  2. TESTOSTERONE GEL [Concomitant]
     Route: 065
  3. TEMAZEPAM [Concomitant]
     Route: 065
  4. LISINOPRIL HCTZ [Concomitant]
     Route: 065
  5. HYDROCODONE [Concomitant]
     Route: 065
  6. METFORMIN [Concomitant]
     Indication: TYPE 2 DIABETES MELLITUS
     Dosage: 500 MG
     Route: 048
     Dates: start: 201208

REACTIONS (1)
  - White blood cell count increased [Not Recovered/Not Resolved]
